FAERS Safety Report 10174582 (Version 1)
Quarter: 2014Q2

REPORT INFORMATION
  Report Type: Spontaneous
  Country: US (occurrence: None)
  Receive Date: 20140416
  Receipt Date: 20140416
  Transmission Date: 20141212
  Serious: No
  Sender: FDA-Public Use
  Company Number: 163-POMAL-13112290

PATIENT
  Age: 79 Year
  Sex: Male

DRUGS (8)
  1. POMALYST (POMALIDOMIDE) (4 MILLIGRAM, CAPSULES) [Suspect]
     Indication: PLASMA CELL MYELOMA
     Dosage: 21 IN 21 D
     Route: 048
     Dates: start: 20131017, end: 20131021
  2. ATENOLOL (ATENOLOL) [Concomitant]
  3. FLOMAX (TAMSULOSIN) [Concomitant]
  4. HYDROMORPHONE (HYDROMORPHONE) [Concomitant]
  5. LASIX (FUROSEMIDE) [Concomitant]
  6. MORPHINE (MORPHINE) [Concomitant]
  7. OMEPRAZOLE (OMEPRAZOLE) [Concomitant]
  8. ZETIA (EZETIMIBE) [Concomitant]

REACTIONS (5)
  - Malaise [None]
  - Diarrhoea [None]
  - Fatigue [None]
  - Dyspnoea [None]
  - Constipation [None]
